FAERS Safety Report 13643841 (Version 1)
Quarter: 2017Q2

REPORT INFORMATION
  Report Type: Spontaneous
  Country: GB (occurrence: GB)
  Receive Date: 20170612
  Receipt Date: 20170612
  Transmission Date: 20170830
  Serious: Yes (Other)
  Sender: FDA-Public Use
  Company Number: GB-MYLANLABS-2017M1034110

PATIENT

DRUGS (1)
  1. CLOZARIL [Suspect]
     Active Substance: CLOZAPINE
     Indication: SCHIZOPHRENIA
     Dosage: UNK
     Route: 048
     Dates: start: 20170412

REACTIONS (4)
  - Diabetes mellitus [Unknown]
  - Blood cholesterol increased [Unknown]
  - Back pain [Unknown]
  - Infection [Unknown]

NARRATIVE: CASE EVENT DATE: 2017
